FAERS Safety Report 9182169 (Version 1)
Quarter: 2013Q1

REPORT INFORMATION
  Report Type: Spontaneous
  Country: BR (occurrence: BR)
  Receive Date: 20130322
  Receipt Date: 20130322
  Transmission Date: 20140127
  Serious: Yes (Other)
  Sender: FDA-Public Use
  Company Number: BR-PFIZER INC-2013088786

PATIENT
  Age: 70 Year
  Sex: Male
  Weight: 50 kg

DRUGS (2)
  1. XALATAN [Suspect]
     Dosage: 1.5 UG (1 DROP IN ONE EYE), 1X/DAY
     Route: 047
     Dates: start: 20100331
  2. GLAUCOTRAT [Concomitant]
     Indication: GLAUCOMA
     Dosage: 1 DROP IN ONE EYE, DAILY
     Route: 047
     Dates: start: 2012

REACTIONS (1)
  - Prostate cancer [Unknown]
